FAERS Safety Report 11006029 (Version 3)
Quarter: 2015Q3

REPORT INFORMATION
  Report Type: Spontaneous
  Country: US (occurrence: US)
  Receive Date: 20150409
  Receipt Date: 20150706
  Transmission Date: 20151125
  Serious: Yes (Death, Hospitalization, Other)
  Sender: FDA-Public Use
  Company Number: US-MERCK-1504USA003815

PATIENT
  Sex: Female
  Weight: 82.86 kg

DRUGS (1)
  1. JANUVIA [Suspect]
     Active Substance: SITAGLIPTIN PHOSPHATE
     Indication: TYPE 2 DIABETES MELLITUS
     Dosage: 100 MG, QD
     Route: 048
     Dates: start: 201308, end: 20131125

REACTIONS (37)
  - Pancreatic carcinoma metastatic [Fatal]
  - Cataract operation [Unknown]
  - Macular degeneration [Unknown]
  - Sleep apnoea syndrome [Unknown]
  - Coronary artery disease [Unknown]
  - Hypertension [Unknown]
  - Gastrooesophageal reflux disease [Unknown]
  - Coronary artery bypass [Unknown]
  - Transient ischaemic attack [Unknown]
  - Pulmonary hypertension [Unknown]
  - Cardiac failure congestive [Unknown]
  - Aortic arteriosclerosis [Unknown]
  - Hypothyroidism [Unknown]
  - Carotid artery stenosis [Unknown]
  - Spinal disorder [Unknown]
  - Hypotension [Unknown]
  - Retching [Unknown]
  - Metastases to liver [Unknown]
  - Rotator cuff repair [Unknown]
  - Hemiparesis [Unknown]
  - Cardiomyopathy [Unknown]
  - Gastric dilatation [Unknown]
  - Arthralgia [Unknown]
  - Presyncope [Unknown]
  - Nodal rhythm [Unknown]
  - Hyperlipidaemia [Unknown]
  - Thyroid cyst [Unknown]
  - Peripheral vascular disorder [Unknown]
  - Gastric mucosal hypertrophy [Unknown]
  - Electrocardiogram QT prolonged [Unknown]
  - Insulin-requiring type 2 diabetes mellitus [Unknown]
  - Myocardial infarction [Unknown]
  - Atelectasis [Unknown]
  - Increased tendency to bruise [Unknown]
  - Asthenia [Unknown]
  - Cardio-respiratory arrest [Fatal]
  - Tongue disorder [Unknown]

NARRATIVE: CASE EVENT DATE: 20130827
